FAERS Safety Report 15749859 (Version 3)
Quarter: 2019Q2

REPORT INFORMATION
  Report Type: Report from Study
  Country: US (occurrence: US)
  Receive Date: 20181221
  Receipt Date: 20190409
  Transmission Date: 20190711
  Serious: Yes (Other)
  Sender: FDA-Public Use
  Company Number: US-BEH-2018097846

PATIENT
  Age: 48 Year
  Sex: Female
  Weight: 56.69 kg

DRUGS (1)
  1. HAEGARDA [Suspect]
     Active Substance: HUMAN C1-ESTERASE INHIBITOR
     Indication: HEREDITARY ANGIOEDEMA WITH NORMAL C1 ESTERASE INHIBITOR
     Dosage: 2000 IU, BIW
     Route: 058
     Dates: start: 201710

REACTIONS (4)
  - Agitation [Not Recovered/Not Resolved]
  - Hereditary angioedema [Unknown]
  - Confusional state [Not Recovered/Not Resolved]
  - Anxiety [Not Recovered/Not Resolved]

NARRATIVE: CASE EVENT DATE: 201710
